FAERS Safety Report 7908340-6 (Version None)
Quarter: 2011Q4

REPORT INFORMATION
  Report Type: 
  Country: None (occurrence: None)
  Receive Date: 20111109
  Receipt Date: 20111109
  Transmission Date: 20120403
  Serious: Yes (Hospitalization)
  Sender: FDA-Public Use
  Company Number: None

PATIENT
  Age: 63 Year
  Sex: Male

DRUGS (1)
  1. LORAZEPAM [Suspect]
     Dates: start: 20110911, end: 20110912

REACTIONS (3)
  - CONFUSIONAL STATE [None]
  - AGITATION [None]
  - SELF-MEDICATION [None]
